FAERS Safety Report 5937272-8 (Version None)
Quarter: 2008Q4

REPORT INFORMATION
  Report Type: 
  Country: None (occurrence: None)
  Receive Date: 20081031
  Receipt Date: 20081023
  Transmission Date: 20090506
  Serious: Yes (Disabling, Congenital Anomaly)
  Sender: FDA-Public Use
  Company Number: FR-ABBOTT-08P-056-0483712-00

PATIENT
  Sex: Male

DRUGS (1)
  1. MICROPAKINE GRANULE [Suspect]
     Indication: DRUG EXPOSURE DURING PREGNANCY
     Route: 064

REACTIONS (32)
  - ALDOLASE INCREASED [None]
  - ANOMALY OF EXTERNAL EAR CONGENITAL [None]
  - C-REACTIVE PROTEIN INCREASED [None]
  - CONGENITAL ANOMALY [None]
  - CONGENITAL EYE DISORDER [None]
  - CONGENITAL GENITAL MALFORMATION MALE [None]
  - CONGENITAL JAW MALFORMATION [None]
  - CONGENITAL NOSE MALFORMATION [None]
  - CRYING [None]
  - CRYPTORCHISM [None]
  - DACRYOSTENOSIS ACQUIRED [None]
  - DEVELOPMENTAL DELAY [None]
  - DRUG EXPOSURE DURING PREGNANCY [None]
  - DYSMORPHISM [None]
  - FOOT DEFORMITY [None]
  - GASTROOESOPHAGEAL REFLUX DISEASE [None]
  - GROWTH RETARDATION [None]
  - HEAD BANGING [None]
  - HYPERTELORISM OF ORBIT [None]
  - HYPERTONIA NEONATAL [None]
  - HYPOSPADIAS [None]
  - HYPOTONIA [None]
  - ILL-DEFINED DISORDER [None]
  - MUSCLE TWITCHING [None]
  - OBSESSIVE RUMINATION [None]
  - POOR SUCKING REFLEX [None]
  - SCOLIOSIS [None]
  - SPEECH DISORDER DEVELOPMENTAL [None]
  - STEREOTYPY [None]
  - STRABISMUS [None]
  - TORTICOLLIS [None]
  - VOMITING [None]
